FAERS Safety Report 23526601 (Version 1)
Quarter: 2024Q1

REPORT INFORMATION
  Report Type: Spontaneous
  Country: US (occurrence: None)
  Receive Date: 20240214
  Receipt Date: 20240214
  Transmission Date: 20240410
  Serious: No
  Sender: FDA-Public Use
  Company Number: None

PATIENT
  Sex: Male

DRUGS (2)
  1. DEFERASIROX [Suspect]
     Active Substance: DEFERASIROX
     Indication: Sickle cell disease
     Dosage: 1000MG DAILY ORAL
     Route: 048
     Dates: start: 202104
  2. ENDARI [Concomitant]
     Active Substance: GLUTAMINE

REACTIONS (2)
  - Sickle cell anaemia with crisis [None]
  - Therapy interrupted [None]
